FAERS Safety Report 5959437-1 (Version None)
Quarter: 2008Q4

REPORT INFORMATION
  Report Type: 
  Country: None (occurrence: None)
  Receive Date: 20081120
  Receipt Date: 20081015
  Transmission Date: 20090506
  Serious: No
  Sender: FDA-Public Use
  Company Number: A0752013A

PATIENT
  Sex: Male

DRUGS (3)
  1. VERAMYST [Suspect]
     Dosage: 2SPR AT NIGHT
     Route: 045
     Dates: start: 20081002
  2. LEXAPRO [Suspect]
     Indication: DEPRESSION
     Dosage: 10MG PER DAY
     Route: 065
     Dates: start: 20080901
  3. VALTREX [Concomitant]

REACTIONS (2)
  - PSYCHOMOTOR HYPERACTIVITY [None]
  - SLEEP DISORDER [None]
